FAERS Safety Report 4648556-8 (Version None)
Quarter: 2005Q2

REPORT INFORMATION
  Report Type: 
  Country: None (occurrence: None)
  Receive Date: 20050429
  Receipt Date: 20050419
  Transmission Date: 20051028
  Serious: Yes (Death)
  Sender: FDA-Public Use
  Company Number: US-JNJFOC-20050103292

PATIENT
  Sex: Male
  Weight: 71.67 kg

DRUGS (4)
  1. DURAGESIC-100 [Suspect]
     Route: 062
     Dates: end: 20040324
  2. OXYCONTIN [Concomitant]
     Route: 049
  3. MORPHINE [Concomitant]
     Route: 049
  4. ALBUTEROL [Concomitant]
     Indication: EMPHYSEMA
     Route: 055

REACTIONS (1)
  - DEATH [None]
